FAERS Safety Report 13336475 (Version 1)
Quarter: 2017Q1

REPORT INFORMATION
  Report Type: Spontaneous
  Country: US (occurrence: US)
  Receive Date: 20170314
  Receipt Date: 20170314
  Transmission Date: 20170428
  Serious: No
  Sender: FDA-Public Use
  Company Number: US-JAZZ-2017-US-001197

PATIENT
  Age: 20 Year
  Sex: Male

DRUGS (9)
  1. XYREM [Suspect]
     Active Substance: SODIUM OXYBATE
     Indication: NARCOLEPSY
     Dosage: 1.25G, BID
     Route: 048
     Dates: start: 201701, end: 2017
  2. RITALIN [Concomitant]
     Active Substance: METHYLPHENIDATE HYDROCHLORIDE
  3. VYVANSE [Concomitant]
     Active Substance: LISDEXAMFETAMINE DIMESYLATE
  4. HYDROXYZINE HCL [Concomitant]
     Active Substance: HYDROXYZINE HYDROCHLORIDE
  5. CELEXA [Concomitant]
     Active Substance: CITALOPRAM HYDROBROMIDE
  6. REQUIP [Concomitant]
     Active Substance: ROPINIROLE HYDROCHLORIDE
  7. XYREM [Suspect]
     Active Substance: SODIUM OXYBATE
     Dosage: 2.25 G, BID
     Route: 048
     Dates: start: 201701, end: 201701
  8. CONCERTA [Concomitant]
     Active Substance: METHYLPHENIDATE HYDROCHLORIDE
  9. NUVIGIL [Concomitant]
     Active Substance: ARMODAFINIL

REACTIONS (10)
  - Feeling drunk [Unknown]
  - Hangover [Unknown]
  - Diarrhoea [Unknown]
  - Tremor [Unknown]
  - Panic attack [Unknown]
  - Vomiting [Unknown]
  - Headache [Recovered/Resolved]
  - Chills [Unknown]
  - Feeling hot [Unknown]
  - Somnolence [Unknown]

NARRATIVE: CASE EVENT DATE: 201701
